FAERS Safety Report 9710412 (Version 2)
Quarter: 2013Q4

REPORT INFORMATION
  Report Type: Spontaneous
  Country: US (occurrence: US)
  Receive Date: 20131126
  Receipt Date: 20131126
  Transmission Date: 20140711
  Serious: Yes (Other)
  Sender: FDA-Public Use
  Company Number: US-BRISTOL-MYERS SQUIBB COMPANY-18977934

PATIENT
  Age: 65 Year
  Sex: Female
  Weight: 84.8 kg

DRUGS (1)
  1. BYDUREON [Suspect]
     Indication: TYPE 2 DIABETES MELLITUS
     Dates: start: 20130603, end: 20130603

REACTIONS (2)
  - Weight decreased [Not Recovered/Not Resolved]
  - Injection site extravasation [Unknown]
